FAERS Safety Report 20635095 (Version 2)
Quarter: 2022Q2

REPORT INFORMATION
  Report Type: Spontaneous
  Country: NL (occurrence: NL)
  Receive Date: 20220325
  Receipt Date: 20220406
  Transmission Date: 20220721
  Serious: Yes (Hospitalization)
  Sender: FDA-Public Use
  Company Number: NL-NOVARTISPH-NVSC2022NL064650

PATIENT

DRUGS (7)
  1. NIFEDIPINE [Suspect]
     Active Substance: NIFEDIPINE
     Indication: Foetal exposure during pregnancy
     Dosage: (MATERNAL DOSE: 30 MG)
     Route: 064
  2. METHYLDOPA [Suspect]
     Active Substance: METHYLDOPA
     Indication: Foetal exposure during pregnancy
     Dosage: (MATERNAL DOSE: 2250 MG QD)
     Route: 064
  3. LABETALOL [Suspect]
     Active Substance: LABETALOL\LABETALOL HYDROCHLORIDE
     Indication: Foetal exposure during pregnancy
     Dosage: (MATERNAL DOSE: 600 MG QD)
     Route: 064
  4. THIOGUANINE ANHYDROUS [Suspect]
     Active Substance: THIOGUANINE ANHYDROUS
     Indication: Foetal exposure during pregnancy
     Dosage: 10 MG, QD
     Route: 064
  5. CALCIUM [Concomitant]
     Active Substance: CALCIUM
     Indication: Foetal exposure during pregnancy
     Dosage: (MATERNAL DOSE: 1000 MG)
     Route: 064
  6. BUDESONIDE [Concomitant]
     Active Substance: BUDESONIDE
     Indication: Foetal exposure during pregnancy
     Dosage: UNK
     Route: 064
  7. ASCAL [Concomitant]
     Indication: Foetal exposure during pregnancy
     Dosage: (MATERNAL DOSE: 100 MG)
     Route: 064

REACTIONS (3)
  - Premature baby [Unknown]
  - Foetal exposure during pregnancy [Unknown]
  - Exposure via breast milk [Unknown]
